FAERS Safety Report 4375958-X (Version None)
Quarter: 2004Q2

REPORT INFORMATION
  Report Type: 
  Country: None (occurrence: None)
  Receive Date: 20040609
  Receipt Date: 20040609
  Transmission Date: 20050107
  Serious: Yes (Other)
  Sender: FDA-Public Use
  Company Number: None

PATIENT
  Sex: Male
  Weight: 40.8237 kg

DRUGS (1)
  1. KWELL [Suspect]
     Indication: ACARODERMATITIS
     Dosage: COUPLE OF TIMES A DAY
     Dates: start: 19920317, end: 19920331

REACTIONS (1)
  - MEDICATION ERROR [None]
